FAERS Safety Report 15083963 (Version 3)
Quarter: 2018Q3

REPORT INFORMATION
  Report Type: Report from Study
  Country: US (occurrence: CN)
  Receive Date: 20180628
  Receipt Date: 20180911
  Transmission Date: 20181010
  Serious: Yes (Hospitalization)
  Sender: FDA-Public Use
  Company Number: US-SA-2018SA167211

PATIENT
  Age: 51 Year
  Sex: Female
  Weight: 65.5 kg

DRUGS (4)
  1. BLINDED SEVELAMER CARBONATE [Suspect]
     Active Substance: SEVELAMER CARBONATE
     Indication: CHRONIC KIDNEY DISEASE
     Dosage: 6 DF, QD; TREATMENT ID: 2798946
     Route: 048
     Dates: start: 20180613, end: 20180616
  2. BLINDED SEVELAMER CARBONATE [Suspect]
     Active Substance: SEVELAMER CARBONATE
     Indication: CHRONIC KIDNEY DISEASE
     Dosage: 6 DF, QD; TREATMENT ID: 2798946
     Route: 048
     Dates: start: 20180613, end: 20180616
  3. BLINDED NO STUDY DRUG GIVEN [Suspect]
     Active Substance: INVESTIGATIONAL PRODUCT
     Indication: CHRONIC KIDNEY DISEASE
     Dosage: 6 DF, QD; TREATMENT ID: 2798946
     Route: 048
     Dates: start: 20180613, end: 20180616
  4. BLINDED PLACEBO [Suspect]
     Active Substance: INVESTIGATIONAL PRODUCT
     Indication: CHRONIC KIDNEY DISEASE
     Dosage: 6 DF, QD; TREATMENT ID: 2798946
     Route: 048
     Dates: start: 20180613, end: 20180616

REACTIONS (1)
  - Chronic kidney disease [Recovered/Resolved]

NARRATIVE: CASE EVENT DATE: 20180616
